FAERS Safety Report 25227630 (Version 1)
Quarter: 2025Q2

REPORT INFORMATION
  Report Type: Report from Study
  Country: CO (occurrence: CO)
  Receive Date: 20250422
  Receipt Date: 20250422
  Transmission Date: 20250717
  Serious: Yes (Death, Hospitalization)
  Sender: ABBVIE
  Company Number: CO-JNJFOC-20250419696

PATIENT
  Age: 47 Year
  Sex: Male
  Weight: 65 kg

DRUGS (1)
  1. IMBRUVICA [Suspect]
     Active Substance: IBRUTINIB
     Indication: Mantle cell lymphoma
     Route: 048
     Dates: start: 20240928, end: 20250204

REACTIONS (9)
  - Cardio-respiratory arrest [Fatal]
  - Lymphadenopathy [Unknown]
  - Treatment noncompliance [Unknown]
  - General physical health deterioration [Unknown]
  - Gingival pain [Unknown]
  - Cognitive disorder [Unknown]
  - Depression [Unknown]
  - Joint swelling [Unknown]
  - Product availability issue [Unknown]

NARRATIVE: CASE EVENT DATE: 20250318
